FAERS Safety Report 16599748 (Version 1)
Quarter: 2019Q3

REPORT INFORMATION
  Report Type: Spontaneous
  Country: US (occurrence: US)
  Receive Date: 20190720
  Receipt Date: 20190720
  Transmission Date: 20191004
  Serious: No
  Sender: FDA-Public Use
  Company Number: US-MACLEODS PHARMACEUTICALS US LTD-MAC2019022055

PATIENT

DRUGS (1)
  1. ENTACAPONE 200 MG TABLET [Suspect]
     Active Substance: ENTACAPONE
     Indication: PRODUCT USED FOR UNKNOWN INDICATION
     Dosage: 200 MILLIGRAM
     Route: 065
     Dates: start: 20190509

REACTIONS (3)
  - Therapeutic product effect incomplete [Unknown]
  - Product substitution issue [Unknown]
  - Intentional product use issue [Unknown]
